FAERS Safety Report 20085755 (Version 1)
Quarter: 2021Q4

REPORT INFORMATION
  Report Type: Spontaneous
  Country: PT (occurrence: PT)
  Receive Date: 20211118
  Receipt Date: 20211118
  Transmission Date: 20220303
  Serious: Yes (Other)
  Sender: FDA-Public Use
  Company Number: PT-BBM-202101414

PATIENT
  Age: 80 Year
  Sex: Male

DRUGS (2)
  1. VENLAFAXINE HCL [Interacting]
     Active Substance: VENLAFAXINE HYDROCHLORIDE
     Dosage: UNK
  2. LINEZOLID [Interacting]
     Active Substance: LINEZOLID
     Indication: Staphylococcus test positive
     Dosage: UNK

REACTIONS (3)
  - Labelled drug-drug interaction medication error [Recovered/Resolved]
  - Serotonin syndrome [Recovered/Resolved]
  - Hyperlactacidaemia [Recovered/Resolved]
